FAERS Safety Report 12402702 (Version 4)
Quarter: 2017Q2

REPORT INFORMATION
  Report Type: Spontaneous
  Country: US (occurrence: US)
  Receive Date: 20160525
  Receipt Date: 20170606
  Transmission Date: 20170830
  Serious: No
  Sender: FDA-Public Use
  Company Number: US-SA-2016SA068164

PATIENT
  Age: 63 Year
  Sex: Female

DRUGS (3)
  1. LANTUS SOLOSTAR [Suspect]
     Active Substance: INSULIN GLARGINE
     Indication: TYPE 2 DIABETES MELLITUS
     Dosage: DOSE:50 UNIT(S)
     Route: 065
     Dates: start: 2015
  2. SOLOSTAR [Concomitant]
     Active Substance: DEVICE
     Dates: start: 2015
  3. LANTUS SOLOSTAR [Suspect]
     Active Substance: INSULIN GLARGINE
     Indication: TYPE 2 DIABETES MELLITUS
     Dosage: DOSE:50 UNIT(S)
     Route: 065
     Dates: start: 2015

REACTIONS (11)
  - Pain [Unknown]
  - Weight decreased [Unknown]
  - Peripheral swelling [Unknown]
  - Burning sensation [Unknown]
  - Dizziness [Unknown]
  - Joint swelling [Unknown]
  - Rash generalised [Recovered/Resolved]
  - Fall [Unknown]
  - Pruritus [Unknown]
  - Gastric disorder [Unknown]
  - Dyspepsia [Unknown]

NARRATIVE: CASE EVENT DATE: 2015
